FAERS Safety Report 16392667 (Version 1)
Quarter: 2019Q2

REPORT INFORMATION
  Report Type: Spontaneous
  Country: IT (occurrence: IT)
  Receive Date: 20190605
  Receipt Date: 20190605
  Transmission Date: 20190711
  Serious: Yes (Hospitalization, Other)
  Sender: FDA-Public Use
  Company Number: IT-ALKEM LABORATORIES LIMITED-IT-ALKEM-2019-04105

PATIENT
  Age: 17 Year
  Sex: Male
  Weight: 38 kg

DRUGS (4)
  1. TACROLIMUS. [Suspect]
     Active Substance: TACROLIMUS
     Indication: IMMUNOSUPPRESSANT DRUG THERAPY
     Dosage: UNK
     Route: 065
  2. COLCHICINE. [Suspect]
     Active Substance: COLCHICINE
     Indication: CAPILLARY LEAK SYNDROME
     Dosage: 0.5 MILLIGRAM
     Route: 048
     Dates: start: 20180310
  3. COLCHICINE. [Suspect]
     Active Substance: COLCHICINE
     Dosage: 10 MICROGRAM/KILOGRAM, QD
     Route: 065
  4. MYCOPHENOLATE MOFETIL. [Suspect]
     Active Substance: MYCOPHENOLATE MOFETIL
     Indication: IMMUNOSUPPRESSANT DRUG THERAPY
     Dosage: 500 MILLIGRAM, BID
     Route: 065

REACTIONS (4)
  - Toxicity to various agents [Unknown]
  - Drug interaction [Unknown]
  - Immunosuppression [Unknown]
  - Leukopenia [Recovered/Resolved]
